FAERS Safety Report 6428027-9 (Version None)
Quarter: 2009Q4

REPORT INFORMATION
  Report Type: 
  Country: None (occurrence: None)
  Receive Date: 20091105
  Receipt Date: 20091027
  Transmission Date: 20100525
  Serious: Yes (Other)
  Sender: FDA-Public Use
  Company Number: US-AMGEN-US355260

PATIENT
  Sex: Female

DRUGS (4)
  1. NPLATE [Suspect]
     Indication: IDIOPATHIC THROMBOCYTOPENIC PURPURA
     Route: 058
     Dates: start: 20090410, end: 20090702
  2. CORTICOSTEROIDS [Concomitant]
     Route: 065
     Dates: start: 20090323
  3. RITUXIMAB [Concomitant]
     Route: 065
     Dates: start: 20090301
  4. DECITABINE [Concomitant]
     Route: 065
     Dates: start: 20090601, end: 20090601

REACTIONS (2)
  - DRUG INEFFECTIVE [None]
  - MYELOID LEUKAEMIA [None]
